FAERS Safety Report 11915877 (Version 1)
Quarter: 2016Q1

REPORT INFORMATION
  Report Type: Spontaneous
  Country: US (occurrence: None)
  Receive Date: 20160113
  Receipt Date: 20160113
  Transmission Date: 20160526
  Serious: No
  Sender: FDA-Public Use
  Company Number: None

PATIENT
  Age: 44 Year
  Sex: Female
  Weight: 71.22 kg

DRUGS (7)
  1. VITAMIN D [Concomitant]
     Active Substance: CHOLECALCIFEROL
  2. VITAMIN B COMPLEX [Concomitant]
     Active Substance: CYANOCOBALAMIN\DEXPANTHENOL\NIACINAMIDE\PYRIDOXINE HYDROCHLORIDE\RIBOFLAVIN 5^-PHOSPHATE SODIUM\THIAMINE HYDROCHLORIDE\VITAMIN B COMPLEX
  3. ZURTEX [Concomitant]
  4. VITAMIN E [Concomitant]
     Active Substance: .ALPHA.-TOCOPHEROL
  5. NASONEX [Concomitant]
     Active Substance: MOMETASONE FUROATE
  6. FLAXSEED [Concomitant]
     Active Substance: FLAX SEED
  7. BREO ELLIPTA [Suspect]
     Active Substance: FLUTICASONE FUROATE\VILANTEROL TRIFENATATE
     Indication: ASTHMA
     Dosage: 1XPUFF
     Route: 055
     Dates: start: 20150701, end: 20160104

REACTIONS (9)
  - Dry skin [None]
  - Menstruation irregular [None]
  - Skin exfoliation [None]
  - Dry mouth [None]
  - Fatigue [None]
  - Swollen tongue [None]
  - Mood swings [None]
  - Thirst [None]
  - Headache [None]

NARRATIVE: CASE EVENT DATE: 20160103
